FAERS Safety Report 15152437 (Version 1)
Quarter: 2018Q3

REPORT INFORMATION
  Report Type: Spontaneous
  Country: GB (occurrence: GB)
  Receive Date: 20180717
  Receipt Date: 20180717
  Transmission Date: 20181010
  Serious: Yes (Hospitalization)
  Sender: FDA-Public Use
  Company Number: GB-TEVA-2018-GB-926856

PATIENT
  Age: 77 Year
  Sex: Female

DRUGS (3)
  1. ATENOLOL. [Concomitant]
     Active Substance: ATENOLOL
     Dosage: 50 MILLIGRAM DAILY;
     Route: 065
  2. SIMVASTATIN. [Concomitant]
     Active Substance: SIMVASTATIN
     Dosage: 20 MILLIGRAM DAILY;
     Route: 065
  3. INDAPAMIDE. [Suspect]
     Active Substance: INDAPAMIDE
     Dosage: 2.5 MILLIGRAM DAILY;
     Route: 048
     Dates: start: 20180424, end: 20180501

REACTIONS (1)
  - Blood sodium decreased [Unknown]
